FAERS Safety Report 6162846-1 (Version None)
Quarter: 2009Q2

REPORT INFORMATION
  Report Type: 
  Country: None (occurrence: None)
  Receive Date: 20090421
  Receipt Date: 20081023
  Transmission Date: 20091009
  Serious: No
  Sender: FDA-Public Use
  Company Number: US-ASTRAZENECA-2008UW23812

PATIENT
  Sex: Male

DRUGS (4)
  1. METOPROLOL SUCCINATE [Suspect]
     Indication: HYPERTENSION
     Dosage: 25 MG HALF TABLET TWICE A DAY
     Route: 048
  2. HYDROCHLOROTHIAZIDE [Concomitant]
  3. WARFARIN SODIUM [Concomitant]
  4. QUINAPRIL [Concomitant]

REACTIONS (1)
  - BLOOD PRESSURE DECREASED [None]
